FAERS Safety Report 19844342 (Version 1)
Quarter: 2021Q3

REPORT INFORMATION
  Report Type: Spontaneous
  Country: US (occurrence: US)
  Receive Date: 20210917
  Receipt Date: 20210917
  Transmission Date: 20211014
  Serious: No
  Sender: FDA-Public Use
  Company Number: US-BAUSCH-BL-2021-029532

PATIENT
  Age: 46 Year
  Sex: Female

DRUGS (1)
  1. LUMIFY [Suspect]
     Active Substance: BRIMONIDINE TARTRATE
     Indication: EYE DISORDER
     Dosage: USED THIS PRODUCT 3 TIMES OVER A MONTH AGO
     Route: 047

REACTIONS (4)
  - Headache [Unknown]
  - Rhinorrhoea [Unknown]
  - Nasal dryness [Unknown]
  - Nasal congestion [Unknown]
